FAERS Safety Report 6765424-6 (Version None)
Quarter: 2010Q2

REPORT INFORMATION
  Report Type: 
  Country: None (occurrence: None)
  Receive Date: 20100611
  Receipt Date: 20100602
  Transmission Date: 20101027
  Serious: Yes (Hospitalization)
  Sender: FDA-Public Use
  Company Number: US-JNJFOC-20100601519

PATIENT
  Sex: Female

DRUGS (6)
  1. TYLENOL [Suspect]
  2. TYLENOL [Suspect]
     Indication: MIGRAINE
  3. KALETRA [Concomitant]
     Indication: HIV INFECTION
  4. FERROUS SULFATE TAB [Concomitant]
     Indication: MINERAL SUPPLEMENTATION
  5. TRUVADA [Concomitant]
     Indication: HIV INFECTION
  6. VALACYCLOVIR [Concomitant]
     Indication: HIV INFECTION

REACTIONS (1)
  - GASTRIC ULCER [None]
